FAERS Safety Report 5103516-8 (Version None)
Quarter: 2006Q3

REPORT INFORMATION
  Report Type: 
  Country: None (occurrence: None)
  Receive Date: 20060913
  Receipt Date: 20060612
  Transmission Date: 20061208
  Serious: Yes (Other)
  Sender: FDA-Public Use
  Company Number: 2006PK01309

PATIENT
  Age: 20615 Day
  Sex: Male
  Weight: 74 kg

DRUGS (3)
  1. BELOC ZOK MITE [Suspect]
     Indication: HYPERTENSION
     Route: 048
     Dates: start: 20060530, end: 20060612
  2. TEGRETOL [Interacting]
     Indication: EPILEPSY
     Route: 048
     Dates: start: 19690101
  3. PHENYTOIN [Interacting]
     Indication: EPILEPSY
     Route: 048
     Dates: start: 19690101

REACTIONS (3)
  - DRUG INTERACTION [None]
  - EPILEPSY [None]
  - SOMNOLENCE [None]
